FAERS Safety Report 7788746-9 (Version None)
Quarter: 2011Q3

REPORT INFORMATION
  Report Type: 
  Country: None (occurrence: None)
  Receive Date: 20110930
  Receipt Date: 20110927
  Transmission Date: 20111222
  Serious: Yes (Hospitalization)
  Sender: FDA-Public Use
  Company Number: GB-PFIZER INC-2010085017

PATIENT
  Age: 49 Year
  Sex: Male
  Weight: 81 kg

DRUGS (8)
  1. PENICILLIN NOS [Concomitant]
     Indication: SPLENECTOMY
     Dosage: 250 MG, 2X/DAY
     Route: 048
     Dates: start: 19970801
  2. CREON [Concomitant]
     Indication: DIARRHOEA
     Dosage: 40000 UNITS DAILY
     Route: 048
     Dates: start: 20070801
  3. DOCUSATE [Concomitant]
     Indication: DIARRHOEA
     Dosage: 200 MG, 1X/DAY
     Route: 048
     Dates: start: 20100319
  4. SUNITINIB MALATE [Suspect]
     Indication: PANCREATIC NEUROENDOCRINE TUMOUR
     Dosage: 37.5 MG, 1X/DAY
     Route: 048
     Dates: start: 20080926, end: 20110520
  5. HUMALOG [Concomitant]
     Indication: DIABETES MELLITUS
     Dosage: 40-32 UNITS DAY
     Dates: start: 20050623
  6. DOMPERIDONE MALEATE [Concomitant]
     Indication: NAUSEA
     Dosage: UNK
     Route: 048
  7. URSODEOXYCHOLIC ACID [Concomitant]
     Indication: PROPHYLAXIS
     Dosage: 250 MG, 3X/DAY
     Route: 048
     Dates: start: 20090306
  8. OMEPRAZOLE [Concomitant]
     Indication: PROPHYLAXIS
     Dosage: 20 MG, 1X/DAY
     Route: 048
     Dates: start: 20090904

REACTIONS (3)
  - CONFUSIONAL STATE [None]
  - DISORIENTATION [None]
  - HEADACHE [None]
